FAERS Safety Report 4440739-5 (Version None)
Quarter: 2004Q3

REPORT INFORMATION
  Report Type: 
  Country: None (occurrence: None)
  Receive Date: 20040824
  Receipt Date: 20040803
  Transmission Date: 20050211
  Serious: Yes (Hospitalization)
  Sender: FDA-Public Use
  Company Number: THYM-10245

PATIENT
  Age: 56 Year
  Sex: Female
  Weight: 73.6 kg

DRUGS (25)
  1. THYMOGLOBULIN [Suspect]
     Indication: IMMUNOSUPPRESSION
     Dosage: 100 MG QD IV
     Route: 042
     Dates: start: 20040713, end: 20040713
  2. THYMOGLOBULIN [Suspect]
     Indication: IMMUNOSUPPRESSION
     Dosage: 111 MG QD IV
     Route: 042
     Dates: start: 20040714, end: 20040714
  3. THYMOGLOBULIN [Suspect]
     Indication: IMMUNOSUPPRESSION
     Dosage: 111 MG QD IV
     Route: 042
     Dates: start: 20040715, end: 20040715
  4. THYMOGLOBULIN [Suspect]
     Indication: IMMUNOSUPPRESSION
     Dosage: 111 MG QD IV
     Route: 042
     Dates: start: 20040717, end: 20040717
  5. BACTRIM [Concomitant]
  6. CELLCEPT [Concomitant]
  7. VALCYTE [Concomitant]
  8. MYCELEX [Concomitant]
  9. COLACE [Concomitant]
  10. STRESS TABS WITH ZINC [Concomitant]
  11. PROGRAF [Concomitant]
  12. PROTONIX [Concomitant]
  13. PRILOSEC [Concomitant]
  14. ZANTAC [Concomitant]
  15. HEPARIN [Concomitant]
  16. NISOLDIPINE [Concomitant]
  17. FILGRASTIM [Concomitant]
  18. METOPROLOL [Concomitant]
  19. PENICILLIN V POTASSIUM [Concomitant]
  20. POTASSIUM CHLORIDE [Concomitant]
  21. TYLOX [Concomitant]
  22. PREDNISONE [Concomitant]
  23. LANTUS [Concomitant]
  24. LISPRO [Concomitant]
  25. AMLODIPINE [Concomitant]

REACTIONS (5)
  - BLOOD GLUCOSE INCREASED [None]
  - DYSPEPSIA [None]
  - NAUSEA [None]
  - OESOPHAGEAL ULCER [None]
  - VOMITING [None]
